FAERS Safety Report 18524471 (Version 1)
Quarter: 2020Q4

REPORT INFORMATION
  Report Type: Spontaneous
  Country: FR (occurrence: FR)
  Receive Date: 20201119
  Receipt Date: 20201119
  Transmission Date: 20210114
  Serious: Yes (Death, Other)
  Sender: FDA-Public Use
  Company Number: FR-TAKEDA-2020TUS051539

PATIENT
  Age: 48 Year

DRUGS (2)
  1. ICLUSIG [Suspect]
     Active Substance: PONATINIB
     Indication: B PRECURSOR TYPE ACUTE LEUKAEMIA
     Dosage: 45 MILLIGRAM, QD
     Route: 065
  2. BLINATUMOMAB [Suspect]
     Active Substance: BLINATUMOMAB
     Indication: B PRECURSOR TYPE ACUTE LEUKAEMIA
     Dosage: UNK
     Route: 065

REACTIONS (3)
  - Nervous system disorder [Fatal]
  - Pneumocystis jirovecii pneumonia [Fatal]
  - B precursor type acute leukaemia [Fatal]
